FAERS Safety Report 22633260 (Version 1)
Quarter: 2023Q2

REPORT INFORMATION
  Report Type: Spontaneous
  Country: JP (occurrence: JP)
  Receive Date: 20230623
  Receipt Date: 20230623
  Transmission Date: 20230722
  Serious: Yes (Hospitalization)
  Sender: FDA-Public Use
  Company Number: JP-Merck Healthcare KGaA-9407858

PATIENT
  Age: 78 Year
  Sex: Male

DRUGS (2)
  1. METGLUCO [Suspect]
     Active Substance: METFORMIN HYDROCHLORIDE
     Indication: Product used for unknown indication
     Route: 048
  2. AZELNIDIPINE\OLMESARTAN MEDOXOMIL [Suspect]
     Active Substance: AZELNIDIPINE\OLMESARTAN MEDOXOMIL
     Indication: Product used for unknown indication
     Route: 048

REACTIONS (4)
  - Surgery [Unknown]
  - Product colour issue [Unknown]
  - Suspected product quality issue [Unknown]
  - Product packaging issue [Unknown]
